FAERS Safety Report 9849437 (Version 1)
Quarter: 2014Q1

REPORT INFORMATION
  Report Type: Spontaneous
  Country: IT (occurrence: None)
  Receive Date: 20140124
  Receipt Date: 20140124
  Transmission Date: 20141002
  Serious: Yes (Hospitalization)
  Sender: FDA-Public Use
  Company Number: AUR-APL-2013-09848

PATIENT
  Age: 63 Year
  Sex: Male

DRUGS (10)
  1. RAMIPRIL [Suspect]
     Indication: HYPERTENSION
     Dosage: 1 DOSAGE FORMS, 1 D, ORAL
     Route: 048
     Dates: start: 20130901, end: 20131108
  2. KANRENOL [Suspect]
     Indication: HYPERTENSION
     Dosage: 200 MG, 1 D, ORAL
     Route: 048
     Dates: start: 20130926, end: 20131108
  3. POTASSIUM [Suspect]
     Indication: PRODUCT USED FOR UNKNOWN INDICATION
     Dates: start: 20130801, end: 20131108
  4. FERRO-GRAD (FERROUS SULFATE) [Concomitant]
  5. BISOPROLOL HEMIFUMARATE (BISOPROLOL FUMARATE)?? [Concomitant]
  6. ATORVASTATIN (ATORVASTATIN) [Concomitant]
  7. DORZOLAMIDE (DORZOLAMIDE) [Concomitant]
  8. TIMOLOL (TIMOLOL) (NONE) [Concomitant]
  9. INSULIN LISPRO (INSULIN LISPRO) [Concomitant]
  10. INSULIN GLARGINE (INSULIN GLARGINE) [Concomitant]

REACTIONS (2)
  - Asthenia [None]
  - Hyperkalaemia [None]
